FAERS Safety Report 20572785 (Version 1)
Quarter: 2022Q1

REPORT INFORMATION
  Report Type: Spontaneous
  Country: US (occurrence: None)
  Receive Date: 20220309
  Receipt Date: 20220309
  Transmission Date: 20220423
  Serious: Yes (Hospitalization)
  Sender: FDA-Public Use
  Company Number: None

PATIENT
  Age: 16 Year
  Sex: Male
  Weight: 74.6 kg

DRUGS (4)
  1. METHOTREXATE [Suspect]
     Active Substance: METHOTREXATE
     Dates: end: 20220301
  2. CYTARABINE [Suspect]
     Active Substance: CYTARABINE
     Dates: end: 20220225
  3. ONCASPAR [Suspect]
     Active Substance: PEGASPARGASE
     Dates: end: 20220301
  4. VINCRISTINE SULFATE [Suspect]
     Active Substance: VINCRISTINE SULFATE
     Dates: end: 20220301

REACTIONS (4)
  - Leukoencephalopathy [None]
  - Toxicity to various agents [None]
  - Tonic clonic movements [None]
  - Pyrexia [None]

NARRATIVE: CASE EVENT DATE: 20220306
